FAERS Safety Report 6904307-5 (Version None)
Quarter: 2010Q3

REPORT INFORMATION
  Report Type: 
  Country: None (occurrence: None)
  Receive Date: 20100708
  Receipt Date: 20090623
  Transmission Date: 20110219
  Serious: Yes (Other)
  Sender: FDA-Public Use
  Company Number: 2009208503

PATIENT
  Age: 55 Year

DRUGS (1)
  1. CHANTIX [Suspect]

REACTIONS (1)
  - PANCREATITIS [None]
